FAERS Safety Report 10790098 (Version 1)
Quarter: 2015Q1

REPORT INFORMATION
  Report Type: Spontaneous
  Country: JP (occurrence: JP)
  Receive Date: 20150212
  Receipt Date: 20150212
  Transmission Date: 20150721
  Serious: Yes (Other)
  Sender: FDA-Public Use
  Company Number: JP-JNJFOC-20150204181

PATIENT
  Age: 6 Year
  Sex: Male

DRUGS (3)
  1. REMICADE [Suspect]
     Active Substance: INFLIXIMAB
     Indication: HISTIOCYTOSIS HAEMATOPHAGIC
     Route: 042
  2. CHEMOTHERAPY [Suspect]
     Active Substance: UNSPECIFIED INGREDIENT
     Indication: ACUTE LYMPHOCYTIC LEUKAEMIA
     Route: 065
  3. PREDNISOLONE. [Suspect]
     Active Substance: PREDNISOLONE
     Indication: ACUTE LYMPHOCYTIC LEUKAEMIA
     Route: 065

REACTIONS (3)
  - Renal failure [Unknown]
  - Product use issue [Unknown]
  - Device related infection [Recovered/Resolved]
